FAERS Safety Report 11491885 (Version 3)
Quarter: 2015Q4

REPORT INFORMATION
  Report Type: Spontaneous
  Country: BR (occurrence: BR)
  Receive Date: 20150910
  Receipt Date: 20151130
  Transmission Date: 20160304
  Serious: Yes (Hospitalization, Other)
  Sender: FDA-Public Use
  Company Number: BR-ABBVIE-15P-020-1461608-00

PATIENT
  Age: 4 Month
  Sex: Male
  Weight: 12.5 kg

DRUGS (18)
  1. SYNTHROID [Suspect]
     Active Substance: LEVOTHYROXINE SODIUM
     Indication: BLOOD THYROID STIMULATING HORMONE ABNORMAL
     Route: 048
     Dates: start: 201308
  2. MOTILIUM [Concomitant]
     Active Substance: DOMPERIDONE
     Indication: GASTROOESOPHAGEAL REFLUX DISEASE
     Dosage: DAILY DOSE: 7.5 ML; 30 MINUTES BEFORE MEAL
     Route: 048
     Dates: start: 201401
  3. VALPAKINE [Concomitant]
     Active Substance: VALPROATE SODIUM
     Indication: EPILEPSY
     Route: 048
     Dates: start: 201411
  4. LOSEC [Concomitant]
     Active Substance: OMEPRAZOLE
     Indication: GASTROOESOPHAGEAL REFLUX DISEASE
  5. SYNTHROID [Suspect]
     Active Substance: LEVOTHYROXINE SODIUM
     Route: 048
     Dates: start: 201310
  6. FRISIUM [Concomitant]
     Active Substance: CLOBAZAM
     Indication: EPILEPSY
     Dosage: 10 MG; AT NIGHT
     Route: 048
     Dates: start: 201411, end: 201507
  7. MELATONIN [Concomitant]
     Active Substance: MELATONIN
     Indication: SLEEP DISORDER THERAPY
     Dosage: 5 MG; AT NIGHT
     Route: 048
     Dates: start: 2013
  8. CANNABIDIOL [Concomitant]
     Active Substance: CANNABIDIOL
     Indication: EPILEPSY
     Route: 048
     Dates: start: 201411
  9. SYNTHROID [Suspect]
     Active Substance: LEVOTHYROXINE SODIUM
     Route: 048
     Dates: start: 201308
  10. DEPAKOTE [Suspect]
     Active Substance: DIVALPROEX SODIUM
     Indication: EPILEPSY
     Route: 048
     Dates: start: 201302, end: 201411
  11. LABEL [Concomitant]
     Indication: GASTRIC DISORDER
     Route: 048
     Dates: start: 201401, end: 201501
  12. MOTILIUM [Concomitant]
     Active Substance: DOMPERIDONE
     Indication: IMPAIRED GASTRIC EMPTYING
  13. SEDATIF PC [Concomitant]
     Active Substance: VIBURNUM OPULUS BARK
     Indication: SLEEP DISORDER THERAPY
     Dosage: 0.5 TABLET; BEFORE GO TO SLEEP.
     Route: 048
     Dates: start: 201504, end: 201508
  14. SYNTHROID [Suspect]
     Active Substance: LEVOTHYROXINE SODIUM
     Indication: BLOOD THYROID STIMULATING HORMONE ABNORMAL
     Route: 048
     Dates: start: 201410
  15. SYNTHROID [Suspect]
     Active Substance: LEVOTHYROXINE SODIUM
     Dosage: 75 MCG; 1 TAB 50 MCG+1 TAB 25 MCG/DAY
     Route: 048
     Dates: start: 201509
  16. GARDENAL [Suspect]
     Active Substance: PHENOBARBITAL
     Indication: EPILEPSY
     Dosage: 40 MG; AT NIGHT
     Route: 065
     Dates: start: 201409, end: 201410
  17. LOSEC [Concomitant]
     Active Substance: OMEPRAZOLE
     Indication: GASTRITIS
     Dosage: DAILY DOSE: 20 MG; IN THE MORNING (FASTING) AND AT NIGHT.
     Route: 048
     Dates: start: 201501
  18. LABEL [Concomitant]
     Indication: PROPHYLAXIS
     Route: 048
     Dates: start: 201401, end: 201501

REACTIONS (7)
  - Pneumonia [Recovered/Resolved]
  - Blood thyroid stimulating hormone decreased [Recovering/Resolving]
  - Blood thyroid stimulating hormone decreased [Unknown]
  - Off label use [Recovered/Resolved]
  - Gastrectomy [Unknown]
  - Hypopnoea [Unknown]
  - Respiratory depression [Recovered/Resolved]

NARRATIVE: CASE EVENT DATE: 201302
